FAERS Safety Report 4648469-1 (Version None)
Quarter: 2005Q2

REPORT INFORMATION
  Report Type: 
  Country: None (occurrence: None)
  Receive Date: 20050427
  Receipt Date: 20050401
  Transmission Date: 20051028
  Serious: Yes (Hospitalization)
  Sender: FDA-Public Use
  Company Number: S05-FRA-01559-01

PATIENT
  Age: 55 Year
  Sex: Male

DRUGS (2)
  1. CITALOPRAM HYDROBROMIDE [Suspect]
     Indication: MENTAL DISORDER
     Dosage: 560 MG ONCE PO
     Route: 048
     Dates: start: 20050301, end: 20050301
  2. VICTAN (ETHYL LOFLAZEPATE) [Suspect]
     Indication: MENTAL DISORDER
     Dosage: 60 MG ONCE PO
     Route: 048
     Dates: start: 20050301, end: 20050301

REACTIONS (4)
  - INTENTIONAL MISUSE [None]
  - LOSS OF CONSCIOUSNESS [None]
  - MULTIPLE DRUG OVERDOSE [None]
  - SUICIDE ATTEMPT [None]
